FAERS Safety Report 8883375 (Version 2)
Quarter: 2012Q4

REPORT INFORMATION
  Report Type: 
  Country: US (occurrence: US)
  Receive Date: 20121102
  Receipt Date: 20121107
  Transmission Date: 20130627
  Serious: Yes (Hospitalization)
  Sender: FDA-Public Use
  Company Number: US-ACTELION-A-NJ2012-73721

PATIENT
  Age: 29 Year
  Sex: Female

DRUGS (4)
  1. TRACLEER [Suspect]
     Indication: PULMONARY ARTERIAL HYPERTENSION
     Dosage: 125 mg, bid
     Route: 048
     Dates: start: 20070919
  2. TRACLEER [Suspect]
     Dosage: 62.5 mg, bid
     Route: 048
     Dates: start: 200704, end: 20070918
  3. SILDENAFIL [Concomitant]
  4. TYVASO [Concomitant]

REACTIONS (2)
  - Diabetes mellitus [Not Recovered/Not Resolved]
  - Hyperglycaemia [Not Recovered/Not Resolved]
